FAERS Safety Report 5834535-1 (Version None)
Quarter: 2008Q3

REPORT INFORMATION
  Report Type: 
  Country: None (occurrence: None)
  Receive Date: 20080801
  Receipt Date: 20080716
  Transmission Date: 20090109
  Serious: Yes (Hospitalization)
  Sender: FDA-Public Use
  Company Number: 2008AL008380

PATIENT
  Age: 71 Year
  Sex: Male
  Weight: 73.4827 kg

DRUGS (1)
  1. DIGOXIN [Suspect]
     Indication: ATRIAL FIBRILLATION
     Dosage: 0.12MG, DAILY, PO
     Route: 048

REACTIONS (6)
  - ANOREXIA [None]
  - CARDIOACTIVE DRUG LEVEL INCREASED [None]
  - DIZZINESS [None]
  - FATIGUE [None]
  - INSOMNIA [None]
  - WEIGHT DECREASED [None]
